FAERS Safety Report 4785009-0 (Version None)
Quarter: 2005Q3

REPORT INFORMATION
  Report Type: 
  Country: None (occurrence: None)
  Receive Date: 20050928
  Receipt Date: 20050913
  Transmission Date: 20060218
  Serious: Yes (Other)
  Sender: FDA-Public Use
  Company Number: USA0509108063

PATIENT
  Age: 75 Year
  Sex: Female

DRUGS (10)
  1. FORTEO [Suspect]
     Indication: OSTEOPOROSIS
     Dates: start: 20050101
  2. COUMADIN [Concomitant]
  3. HYDROCHLOROTHIAZIDE [Concomitant]
  4. COZAAR [Concomitant]
  5. ATENOLOL [Concomitant]
  6. PROPOXYPHEN HCL AND ACETAMINOPHEN [Concomitant]
  7. XANAX [Concomitant]
  8. LEXAPRO (ESCITALOPRAM OXYLATE) [Concomitant]
  9. NITROGLYCERIN [Concomitant]
  10. ISOSORBIDE [Concomitant]

REACTIONS (5)
  - BACK DISORDER [None]
  - CHEST PAIN [None]
  - HYPOAESTHESIA [None]
  - PHARMACEUTICAL PRODUCT COMPLAINT [None]
  - TRANSIENT ISCHAEMIC ATTACK [None]
